FAERS Safety Report 6142453-7 (Version None)
Quarter: 2009Q2

REPORT INFORMATION
  Report Type: 
  Country: None (occurrence: None)
  Receive Date: 20090403
  Receipt Date: 20090325
  Transmission Date: 20091009
  Serious: Yes (Other)
  Sender: FDA-Public Use
  Company Number: AU-SOLVAY-00209001787

PATIENT
  Age: 31180 Day
  Sex: Male

DRUGS (5)
  1. PERINDOPRIL NOS [Suspect]
     Indication: ESSENTIAL HYPERTENSION
     Dosage: DAILY DOSE:  UNKNOWN
     Route: 048
     Dates: end: 20080924
  2. IRBESARTAN [Suspect]
     Indication: ESSENTIAL HYPERTENSION
     Dosage: DAILY DOSE:  UNKNOWN
     Route: 048
     Dates: end: 20080924
  3. ATORVASTATIN CALCIUM [Suspect]
     Indication: DRUG USE FOR UNKNOWN INDICATION
     Dosage: DAILY DOSE: 20 MILLIGRAM(S)
     Route: 048
     Dates: end: 20080602
  4. AUGMENTIN '125' [Suspect]
     Indication: PNEUMONIA
     Dosage: DAILY DOSE:  UNKNOWN
     Route: 048
     Dates: start: 20080602, end: 20080606
  5. ROXITHROMYCIN [Suspect]
     Indication: PNEUMONIA
     Dosage: DAILY DOSE: 300 MILLIGRAM(S)
     Route: 048
     Dates: start: 20080602, end: 20080606

REACTIONS (3)
  - ASCITES [None]
  - HEPATIC FUNCTION ABNORMAL [None]
  - HYPOALBUMINAEMIA [None]
